FAERS Safety Report 24991176 (Version 1)
Quarter: 2025Q1

REPORT INFORMATION
  Report Type: Spontaneous
  Country: US (occurrence: US)
  Receive Date: 20250220
  Receipt Date: 20250220
  Transmission Date: 20250409
  Serious: No
  Sender: PFIZER
  Company Number: US-PFIZER INC-PV202500019466

PATIENT
  Age: 24 Year
  Sex: Male

DRUGS (2)
  1. XELJANZ XR [Suspect]
     Active Substance: TOFACITINIB CITRATE
     Indication: Colitis ulcerative
     Dosage: 22MG  DAILY
     Route: 048
     Dates: start: 20241126
  2. STELARA [Concomitant]
     Active Substance: USTEKINUMAB

REACTIONS (1)
  - Condition aggravated [Not Recovered/Not Resolved]
